FAERS Safety Report 4911458-3 (Version None)
Quarter: 2006Q1

REPORT INFORMATION
  Report Type: 
  Country: None (occurrence: None)
  Receive Date: 20060213
  Receipt Date: 20060207
  Transmission Date: 20060701
  Serious: Yes (Hospitalization)
  Sender: FDA-Public Use
  Company Number: 2006-070

PATIENT
  Sex: Male

DRUGS (1)
  1. HIBICLENS [Suspect]
     Dosage: TOPICAL
     Route: 061

REACTIONS (2)
  - VOMITING [None]
  - WRONG DRUG ADMINISTERED [None]
